FAERS Safety Report 5417995-X (Version None)
Quarter: 2007Q3

REPORT INFORMATION
  Report Type: 
  Country: None (occurrence: None)
  Receive Date: 20070817
  Receipt Date: 20070702
  Transmission Date: 20080115
  Serious: No
  Sender: FDA-Public Use
  Company Number: A0656490A

PATIENT
  Sex: Male

DRUGS (1)
  1. VERAMYST [Suspect]
     Indication: SINUS DISORDER
     Route: 045
     Dates: start: 20070606

REACTIONS (5)
  - ACNE [None]
  - NASAL DISCOMFORT [None]
  - RASH [None]
  - RASH ERYTHEMATOUS [None]
  - SINUS HEADACHE [None]
